FAERS Safety Report 4345699-3 (Version None)
Quarter: 2004Q2

REPORT INFORMATION
  Report Type: 
  Country: None (occurrence: None)
  Receive Date: 20040421
  Receipt Date: 20040407
  Transmission Date: 20050107
  Serious: Yes (Other)
  Sender: FDA-Public Use
  Company Number: US012979

PATIENT
  Age: 20 Year
  Sex: Female

DRUGS (2)
  1. PROVIGIL [Suspect]
     Dosage: 100 MG ORAL
     Route: 048
  2. STRATTERA [Concomitant]

REACTIONS (1)
  - CONVULSION [None]
